FAERS Safety Report 10080484 (Version 2)
Quarter: 2014Q2

REPORT INFORMATION
  Report Type: Spontaneous
  Country: US (occurrence: US)
  Receive Date: 20140416
  Receipt Date: 20140527
  Transmission Date: 20141212
  Serious: Yes (Death)
  Sender: FDA-Public Use
  Company Number: US-UCBSA-117639

PATIENT
  Age: 33 Year
  Sex: Female

DRUGS (4)
  1. KEPPRA [Suspect]
     Indication: CONVULSION
  2. LAMICTAL [Suspect]
     Indication: CONVULSION
     Route: 048
     Dates: start: 2010
  3. TRILEPTAL [Suspect]
     Indication: CONVULSION
  4. MULTIVITAMINS [Concomitant]

REACTIONS (3)
  - Road traffic accident [Fatal]
  - Head injury [Fatal]
  - Injury [Fatal]
